FAERS Safety Report 8220441-4 (Version None)
Quarter: 2012Q1

REPORT INFORMATION
  Report Type: 
  Country: None (occurrence: None)
  Receive Date: 20120319
  Receipt Date: 20120113
  Transmission Date: 20120608
  Serious: Yes (Other)
  Sender: FDA-Public Use
  Company Number: PHHY2012KR021587

PATIENT
  Sex: Male
  Weight: 58 kg

DRUGS (2)
  1. EXJADE [Suspect]
     Indication: APLASTIC ANAEMIA
     Dosage: 1500 MG, DAILY
     Route: 048
     Dates: start: 20100629
  2. EXJADE [Suspect]
     Indication: IRON OVERLOAD

REACTIONS (1)
  - GENERAL PHYSICAL CONDITION ABNORMAL [None]
